FAERS Safety Report 17276031 (Version 2)
Quarter: 2020Q1

REPORT INFORMATION
  Report Type: Report from Study
  Country: IT (occurrence: IT)
  Receive Date: 20200116
  Receipt Date: 20200328
  Transmission Date: 20200409
  Serious: No
  Sender: FDA-Public Use
  Company Number: IT-ACCORD-169323

PATIENT
  Age: 53 Year
  Sex: Female

DRUGS (6)
  1. CYCLOPHOSPHAMIDE/CYCLOPHOSPHAMIDE MONOHYDRATE [Concomitant]
     Active Substance: CYCLOPHOSPHAMIDE
     Indication: BREAST CANCER
     Route: 042
     Dates: start: 20190716
  2. FLUOROURACIL AHCL [Suspect]
     Active Substance: FLUOROURACIL
     Indication: BREAST CANCER
     Route: 042
     Dates: start: 20190708, end: 20191008
  3. ENDOXAN BAXTER [Concomitant]
     Active Substance: CYCLOPHOSPHAMIDE
     Dosage: STRENGTH 1 G POWDER FOR SOLUTION FOR INJECTION
  4. DECADRON [Concomitant]
     Active Substance: DEXAMETHASONE
     Dosage: 8 MG / 2 ML SOLUTION FOR INJECTION - 3 VIALS OF 2 ML
  5. EPIRUBICIN AHCL [Suspect]
     Active Substance: EPIRUBICIN
     Indication: BREAST CANCER
     Route: 042
     Dates: start: 20190708
  6. ONDANSETRON TEVA [Concomitant]
     Active Substance: ONDANSETRON
     Dosage: STRENGTH 8 MG FILM-COATED TABLETS
     Route: 048

REACTIONS (10)
  - Disturbance in attention [Unknown]
  - Nausea [Unknown]
  - Asthenia [Unknown]
  - Feeling cold [Unknown]
  - Myalgia [Unknown]
  - Alopecia [Unknown]
  - Decreased appetite [Unknown]
  - Hot flush [Unknown]
  - Salivary hypersecretion [Unknown]
  - Insomnia [Unknown]

NARRATIVE: CASE EVENT DATE: 20190808
